FAERS Safety Report 15101788 (Version 2)
Quarter: 2018Q3

REPORT INFORMATION
  Report Type: Report from Study
  Country: ES (occurrence: ES)
  Receive Date: 20180703
  Receipt Date: 20180815
  Transmission Date: 20181010
  Serious: Yes (Other)
  Sender: FDA-Public Use
  Company Number: ES-PFIZER INC-2018015070

PATIENT
  Age: 45 Year

DRUGS (3)
  1. PACLITAXEL. [Suspect]
     Active Substance: PACLITAXEL
     Indication: BREAST CANCER METASTATIC
     Dosage: 90 MG/M2, UNK , FORM STRENGTH: 6 MG/ML
     Route: 042
     Dates: start: 20170818
  2. AVASTIN [Suspect]
     Active Substance: BEVACIZUMAB
     Dosage: 15 MG/M2, UNK (FORM STRENGTH: 25 MG/ML)
     Route: 042
     Dates: start: 20180226
  3. AVASTIN [Suspect]
     Active Substance: BEVACIZUMAB
     Indication: BREAST CANCER METASTATIC
     Dosage: 15 MG/KG, UNK (FORM STRENGHT 25 MG/ML)
     Route: 042
     Dates: start: 20170224

REACTIONS (25)
  - Tooth infection [Recovered/Resolved]
  - Abdominal pain upper [Recovered/Resolved]
  - Abdominal pain [Recovered/Resolved]
  - Neuropathy peripheral [Recovered/Resolved]
  - Epistaxis [Unknown]
  - Nausea [Recovered/Resolved]
  - Asthenia [Recovered/Resolved]
  - Dyspnoea [Recovered/Resolved]
  - Skin hyperpigmentation [Recovered/Resolved]
  - Nasal dryness [Recovering/Resolving]
  - Palmar-plantar erythrodysaesthesia syndrome [Recovered/Resolved]
  - Paronychia [Recovered/Resolved]
  - Vomiting [Recovered/Resolved]
  - Diarrhoea [Unknown]
  - Laryngitis [Recovered/Resolved]
  - Erythema [Recovered/Resolved]
  - Neuropathy peripheral [Recovered/Resolved]
  - Toothache [Recovered/Resolved]
  - Tendonitis [Recovered/Resolved]
  - Lacrimation increased [Recovering/Resolving]
  - Cellulitis [Recovered/Resolved]
  - Chest discomfort [Recovered/Resolved]
  - Nail disorder [Recovered/Resolved]
  - Hypertension [Recovered/Resolved]
  - Alopecia [Not Recovered/Not Resolved]

NARRATIVE: CASE EVENT DATE: 20170224
